FAERS Safety Report 15121715 (Version 1)
Quarter: 2018Q3

REPORT INFORMATION
  Report Type: Spontaneous
  Country: AU (occurrence: AU)
  Receive Date: 20180709
  Receipt Date: 20180709
  Transmission Date: 20181010
  Serious: Yes (Other)
  Sender: FDA-Public Use
  Company Number: AU-JNJFOC-20180627261

PATIENT
  Sex: Female
  Weight: 49.7 kg

DRUGS (1)
  1. STELARA [Suspect]
     Active Substance: USTEKINUMAB
     Indication: PRODUCT USED FOR UNKNOWN INDICATION
     Dosage: 0.25 ML
     Route: 058
     Dates: start: 20180326

REACTIONS (2)
  - Upper respiratory tract infection [Unknown]
  - Pelvic inflammatory disease [Unknown]

NARRATIVE: CASE EVENT DATE: 2018
